FAERS Safety Report 8642966 (Version 2)
Quarter: 2012Q4

REPORT INFORMATION
  Report Type: 
  Country: US (occurrence: US)
  Receive Date: 20120629
  Receipt Date: 20121004
  Transmission Date: 20130627
  Serious: Yes (Hospitalization)
  Sender: FDA-Public Use
  Company Number: US-B.I. PHARMACEUTICALS,INC./RIDGEFIELD-2012-BP-14409BP

PATIENT
  Age: 62 None
  Sex: Female
  Weight: 126 kg

DRUGS (14)
  1. SPIRIVA [Suspect]
     Indication: DYSPNOEA
     Dosage: 18 mcg
     Route: 055
     Dates: start: 2001
  2. SYNTHROID [Concomitant]
     Indication: THYROID DISORDER
     Route: 048
  3. THEOPHYLLINE [Concomitant]
     Indication: DYSPNOEA
     Dosage: 600 mg
     Route: 048
     Dates: start: 1999
  4. LASIX [Concomitant]
     Indication: CARDIAC FAILURE CONGESTIVE
     Dosage: 80 mg
     Route: 048
     Dates: start: 2000
  5. GLUOPHAGE [Concomitant]
     Indication: BLOOD GLUCOSE ABNORMAL
     Dosage: 1500 mg
     Route: 048
     Dates: start: 1999
  6. METFORMIN [Concomitant]
     Indication: BLOOD GLUCOSE ABNORMAL
     Dosage: 1000 mg
     Route: 048
     Dates: start: 1999
  7. SIMVASTATIN [Concomitant]
     Indication: BLOOD CHOLESTEROL
     Route: 048
  8. AMLODIPINE [Concomitant]
     Indication: CARDIAC DISORDER
     Dosage: 5 mg
     Route: 048
     Dates: start: 2000
  9. CYCLOBENZAPRINE [Concomitant]
     Indication: MUSCLE SPASMS
     Dosage: 10 mg
     Route: 048
  10. ASPIRIN [Concomitant]
     Indication: ISCHAEMIC HEART DISEASE PROPHYLAXIS
     Dosage: 325 mg
     Route: 048
  11. BUSPIRONE [Concomitant]
     Indication: NERVOUSNESS
     Dosage: 30 mg
     Route: 048
     Dates: start: 2005
  12. ALPRAZOLAM [Concomitant]
     Indication: ANXIETY
     Dosage: 6 mg
     Route: 048
     Dates: start: 2005
  13. LANTUS [Concomitant]
     Indication: BLOOD GLUCOSE INCREASED
     Dosage: 40 U
     Route: 058
     Dates: start: 2000
  14. OMPRAZOLE [Concomitant]
     Indication: ULCER
     Dosage: 40 mg
     Route: 048

REACTIONS (5)
  - Dyspnoea [Not Recovered/Not Resolved]
  - Herpes virus infection [Unknown]
  - Cyst [Unknown]
  - Breast cyst [Unknown]
  - Drug ineffective [Unknown]
